FAERS Safety Report 6259097-9 (Version None)
Quarter: 2009Q3

REPORT INFORMATION
  Report Type: 
  Country: None (occurrence: None)
  Receive Date: 20090707
  Receipt Date: 20090623
  Transmission Date: 20100115
  Serious: Yes (Other)
  Sender: FDA-Public Use
  Company Number: US-MYLANLABS-2008S1004143

PATIENT
  Age: 30 Year
  Sex: Female
  Weight: 76 kg

DRUGS (10)
  1. FLUOXETINE HCL [Suspect]
     Indication: SCHIZOPHRENIA
     Route: 048
     Dates: start: 20070921, end: 20080207
  2. FLUOXETINE HCL [Suspect]
     Route: 048
  3. ACETAMINOPHEN [Concomitant]
     Indication: PAIN
     Route: 048
  4. IPREN [Concomitant]
     Indication: PAIN
     Route: 048
  5. CODEINE [Concomitant]
     Indication: PAIN
     Dosage: KODEIN DAK
  6. IBUMETIN [Concomitant]
     Indication: PAIN
     Dosage: IBUMETIN
  7. ZOLPIDEM [Concomitant]
     Indication: INSOMNIA
     Dosage: STILNOCT
     Route: 048
  8. TRUXAL [Concomitant]
     Indication: SEDATIVE THERAPY
     Dosage: TRUXAL
     Route: 048
  9. OXABENZ [Concomitant]
     Indication: SEDATIVE THERAPY
     Dosage: OXABENZ
     Route: 048
  10. ABILIFY [Concomitant]
     Indication: DRUG USE FOR UNKNOWN INDICATION

REACTIONS (14)
  - ABDOMINAL PAIN UPPER [None]
  - ABORTION SPONTANEOUS [None]
  - ARTHRALGIA [None]
  - ASTHENIA [None]
  - BOWEL MOVEMENT IRREGULARITY [None]
  - CHILLS [None]
  - DRUG EXPOSURE DURING PREGNANCY [None]
  - FATIGUE [None]
  - HYPERHIDROSIS [None]
  - INSOMNIA [None]
  - PRURITUS [None]
  - RECTAL HAEMORRHAGE [None]
  - WEIGHT DECREASED [None]
  - YAWNING [None]
